FAERS Safety Report 7874657-7 (Version None)
Quarter: 2011Q4

REPORT INFORMATION
  Report Type: 
  Country: None (occurrence: None)
  Receive Date: 20111031
  Receipt Date: 20111017
  Transmission Date: 20120403
  Serious: Yes (Life-Threatening, Hospitalization, Other)
  Sender: FDA-Public Use
  Company Number: US-RANBAXY-2011US-49990

PATIENT

DRUGS (7)
  1. SUMATRIPTAN SUCCINATE [Concomitant]
     Indication: MIGRAINE
     Dosage: UNK
     Route: 065
  2. GRAPEFRUIT JUICE [Suspect]
     Indication: NAUSEA
     Dosage: 3 - 4 LITRES/DAY
     Route: 065
  3. AMITRIPTYLINE HCL [Concomitant]
     Indication: MIGRAINE
     Dosage: UNK
     Route: 065
  4. VERAPAMIL [Suspect]
     Indication: MIGRAINE
     Dosage: 120 MG, QD
     Route: 048
  5. VERAPAMIL [Suspect]
     Dosage: 120 MG, TID
     Route: 048
  6. AXOTAL [Concomitant]
     Indication: PRODUCT USED FOR UNKNOWN INDICATION
     Dosage: UNK
     Route: 065
  7. TOPIRAMATE [Concomitant]
     Indication: MIGRAINE
     Dosage: UNK
     Route: 065

REACTIONS (12)
  - HEADACHE [None]
  - ATRIOVENTRICULAR BLOCK COMPLETE [None]
  - HEART RATE [None]
  - ACCIDENTAL OVERDOSE [None]
  - HYPOXIA [None]
  - HYPERGLYCAEMIA [None]
  - RESPIRATORY FAILURE [None]
  - METABOLIC ACIDOSIS [None]
  - SENSORY DISTURBANCE [None]
  - DEPRESSED LEVEL OF CONSCIOUSNESS [None]
  - FOOD INTERACTION [None]
  - OFF LABEL USE [None]
